FAERS Safety Report 10711427 (Version 1)
Quarter: 2015Q1

REPORT INFORMATION
  Report Type: Spontaneous
  Country: US (occurrence: US)
  Receive Date: 20150114
  Receipt Date: 20150114
  Transmission Date: 20150721
  Serious: No
  Sender: FDA-Public Use
  Company Number: US-PFIZER INC-2015014342

PATIENT
  Age: 74 Year
  Sex: Female
  Weight: 79.37 kg

DRUGS (1)
  1. FLECTOR [Suspect]
     Active Substance: DICLOFENAC EPOLAMINE
     Indication: PAIN
     Dosage: UNK (ONLY USED THE PATCH TWICE)

REACTIONS (2)
  - Diarrhoea [Unknown]
  - Epistaxis [Unknown]
